FAERS Safety Report 22204820 (Version 1)
Quarter: 2023Q2

REPORT INFORMATION
  Report Type: Report from Study
  Country: CA (occurrence: CA)
  Receive Date: 20230413
  Receipt Date: 20230413
  Transmission Date: 20230722
  Serious: Yes (Other)
  Sender: FDA-Public Use
  Company Number: CA-BIOGEN-2023BI01198185

PATIENT
  Sex: Male

DRUGS (2)
  1. DALFAMPRIDINE [Suspect]
     Active Substance: DALFAMPRIDINE
     Indication: Multiple sclerosis
     Route: 050
  2. Compound 1% HC PWD in Clotrimazole nos [Concomitant]
     Indication: Product used for unknown indication
     Route: 050

REACTIONS (12)
  - Ophthalmic herpes zoster [Unknown]
  - Hypertonic bladder [Unknown]
  - Muscle spasms [Unknown]
  - Muscular weakness [Unknown]
  - Pain in extremity [Unknown]
  - Arthralgia [Unknown]
  - Hypoaesthesia [Unknown]
  - Ankylosing spondylitis [Unknown]
  - Post herpetic neuralgia [Unknown]
  - Sleep disorder [Unknown]
  - Dry eye [Unknown]
  - Constipation [Unknown]
